FAERS Safety Report 11931283 (Version 1)
Quarter: 2016Q1

REPORT INFORMATION
  Report Type: Spontaneous
  Country: US (occurrence: US)
  Receive Date: 20160120
  Receipt Date: 20160120
  Transmission Date: 20160526
  Serious: No
  Sender: FDA-Public Use
  Company Number: US-INCYTE CORPORATION-2015IN004089

PATIENT
  Sex: Male
  Weight: 69.84 kg

DRUGS (16)
  1. PLAVIX [Concomitant]
     Active Substance: CLOPIDOGREL BISULFATE
  2. FISH OIL [Concomitant]
     Active Substance: FISH OIL
  3. JAKAFI [Suspect]
     Active Substance: RUXOLITINIB
     Dosage: 20 MG AND 5 MG BID (TOTAL 25 MG BID)
     Route: 048
     Dates: start: 2015, end: 201508
  4. SAW PALMETTO                       /00833501/ [Concomitant]
     Active Substance: SAW PALMETTO
  5. JAKAFI [Suspect]
     Active Substance: RUXOLITINIB
     Indication: POLYCYTHAEMIA VERA
     Dosage: 20 MG, BID
     Route: 048
     Dates: start: 2015
  6. BABY ASPIRIN [Concomitant]
     Active Substance: ASPIRIN
  7. HYDROXYUREA. [Concomitant]
     Active Substance: HYDROXYUREA
  8. DILANTIN [Concomitant]
     Active Substance: PHENYTOIN
  9. IMDUR [Concomitant]
     Active Substance: ISOSORBIDE MONONITRATE
  10. ATENOLOL. [Concomitant]
     Active Substance: ATENOLOL
  11. CALCIUM [Concomitant]
     Active Substance: CALCIUM
  12. OMEPRAZOLE. [Concomitant]
     Active Substance: OMEPRAZOLE
  13. JAKAFI [Suspect]
     Active Substance: RUXOLITINIB
     Dosage: 20 MG AND 5 MG BID (TOTAL 25 MG BID)
     Route: 048
     Dates: start: 2015, end: 201508
  14. ISOSORBIDE DINITRATE. [Concomitant]
     Active Substance: ISOSORBIDE DINITRATE
  15. LISINOPRIL. [Concomitant]
     Active Substance: LISINOPRIL
  16. NIACIN. [Concomitant]
     Active Substance: NIACIN

REACTIONS (4)
  - Platelet count increased [Unknown]
  - Pollakiuria [Unknown]
  - Drug ineffective [Unknown]
  - Fatigue [Unknown]

NARRATIVE: CASE EVENT DATE: 2015
